FAERS Safety Report 22088372 (Version 1)
Quarter: 2023Q1

REPORT INFORMATION
  Report Type: Spontaneous
  Country: US (occurrence: None)
  Receive Date: 20230310
  Receipt Date: 20230310
  Transmission Date: 20230417
  Serious: Yes (Hospitalization)
  Sender: FDA-Public Use
  Company Number: None

PATIENT
  Age: 83 Year
  Sex: Female

DRUGS (7)
  1. CREST 3D WHITE RADIANT MINT [Suspect]
     Active Substance: SODIUM FLUORIDE
     Dates: start: 20220807, end: 20220810
  2. LIPITOR [Concomitant]
     Active Substance: ATORVASTATIN CALCIUM
  3. LEVOTHYROXINE [Concomitant]
     Active Substance: LEVOTHYROXINE
  4. VITAMIN D NOS [Concomitant]
     Active Substance: VITAMIN D NOS
  5. salmon oil capsules [Concomitant]
  6. CALCIUM [Concomitant]
     Active Substance: CALCIUM
  7. D MANNOSE [Concomitant]

REACTIONS (7)
  - Swollen tongue [None]
  - Oral pain [None]
  - Lip pain [None]
  - Glossodynia [None]
  - Mouth swelling [None]
  - Therapy cessation [None]
  - Allergic reaction to excipient [None]

NARRATIVE: CASE EVENT DATE: 20220810
